FAERS Safety Report 5593967-X (Version None)
Quarter: 2007Q4

REPORT INFORMATION
  Report Type: 
  Country: None (occurrence: None)
  Receive Date: 20071218
  Receipt Date: 20070824
  Transmission Date: 20080405
  Serious: Yes (Hospitalization, Other)
  Sender: FDA-Public Use
  Company Number: 2007040496

PATIENT
  Age: 47 Year
  Sex: Male
  Weight: 73.5 kg

DRUGS (2)
  1. BEXTRA [Suspect]
     Indication: BACK PAIN
     Dosage: (10MG/20MG)
     Dates: start: 20030801
  2. BEXTRA [Suspect]
     Indication: OSTEOARTHRITIS
     Dosage: (10MG/20MG)
     Dates: start: 20030801

REACTIONS (4)
  - ANXIETY [None]
  - DEPRESSION [None]
  - MYOCARDIAL INFARCTION [None]
  - SKIN REACTION [None]
